FAERS Safety Report 7998896-X (Version None)
Quarter: 2011Q4

REPORT INFORMATION
  Report Type: 
  Country: None (occurrence: None)
  Receive Date: 20111221
  Receipt Date: 20111213
  Transmission Date: 20120403
  Serious: Yes (Hospitalization)
  Sender: FDA-Public Use
  Company Number: JP-GLAXOSMITHKLINE-B0562686A

PATIENT
  Sex: Female
  Weight: 33 kg

DRUGS (10)
  1. SELBEX [Concomitant]
     Route: 048
     Dates: start: 20090126, end: 20090207
  2. FAMOTIDINE [Concomitant]
     Indication: DECREASED APPETITE
     Dosage: 20MG PER DAY
     Dates: start: 20090126
  3. MYONAL [Concomitant]
     Dosage: 50MG THREE TIMES PER DAY
     Route: 048
     Dates: start: 20090126, end: 20090207
  4. MOTILIUM [Concomitant]
     Dosage: 10MG THREE TIMES PER DAY
     Route: 048
     Dates: start: 20090126, end: 20090207
  5. EVAMYL [Concomitant]
     Route: 048
  6. OLMESARTAN MEDOXOMIL [Concomitant]
     Route: 048
  7. VERAPAMIL HCL [Concomitant]
  8. PAXIL [Suspect]
     Indication: INSOMNIA
     Dosage: 20MG PER DAY
     Route: 048
     Dates: start: 20090126, end: 20090207
  9. MUCOSTA [Concomitant]
     Route: 048
  10. NEUROTROPIN [Concomitant]
     Dosage: 1TAB THREE TIMES PER DAY
     Route: 048
     Dates: start: 20090126, end: 20090207

REACTIONS (13)
  - HYPONATRAEMIA [None]
  - FATIGUE [None]
  - ABDOMINAL PAIN [None]
  - BLOOD ANTIDIURETIC HORMONE INCREASED [None]
  - NAUSEA [None]
  - OEDEMA [None]
  - RENIN DECREASED [None]
  - INAPPROPRIATE ANTIDIURETIC HORMONE SECRETION [None]
  - DECREASED APPETITE [None]
  - DEHYDRATION [None]
  - MALAISE [None]
  - CONSTIPATION [None]
  - HYPERSTHENURIA [None]
